FAERS Safety Report 21822008 (Version 1)
Quarter: 2023Q1

REPORT INFORMATION
  Report Type: Spontaneous
  Country: TR (occurrence: TR)
  Receive Date: 20230105
  Receipt Date: 20230105
  Transmission Date: 20230418
  Serious: Yes (Other)
  Sender: FDA-Public Use
  Company Number: TR-STERISCIENCE B.V.-2022-ST-000519

PATIENT
  Age: 29 Year
  Sex: Female

DRUGS (11)
  1. BUPIVACAINE [Suspect]
     Active Substance: BUPIVACAINE
     Indication: Epidural analgesia
     Dosage: 12 MILLILITER,0.25% ISOBARIC BUPIVACAINE 12ML INJECTION
  2. FENTANYL [Suspect]
     Active Substance: FENTANYL
     Indication: Epidural analgesia
     Dosage: 50 MICROGRAM
  3. FENTANYL [Suspect]
     Active Substance: FENTANYL
     Dosage: 100 MICROGRAM,INFUSION
     Route: 042
  4. BUPIVACAINE [Suspect]
     Active Substance: BUPIVACAINE
     Indication: Epidural analgesia
     Dosage: 20 MILLILITER,INFUSION
     Route: 042
  5. LIDOCAINE [Suspect]
     Active Substance: LIDOCAINE
     Indication: Local anaesthesia
     Dosage: 3 MILLILITER,INFUSION
     Route: 042
  6. LIDOCAINE [Suspect]
     Active Substance: LIDOCAINE
     Dosage: 60 MILLIGRAM
  7. LIDOCAINE [Suspect]
     Active Substance: LIDOCAINE
     Dosage: 2ML ALONG WITH EPINEPHRINE GIVEN AS THE TEST DOSE
     Route: 042
  8. SODIUM CHLORIDE [Suspect]
     Active Substance: SODIUM CHLORIDE
     Indication: Product used for unknown indication
     Dosage: 0.9% SODIUM CHLORIDE, 8 MILLILITRE PER KILOGRAM
  9. SODIUM CHLORIDE [Suspect]
     Active Substance: SODIUM CHLORIDE
     Dosage: 2 MILLILITER
     Route: 008
  10. SODIUM CHLORIDE [Suspect]
     Active Substance: SODIUM CHLORIDE
     Dosage: 20ML AT 5 ML/H,INFUSION
     Route: 042
  11. EPINEPHRINE [Suspect]
     Active Substance: EPINEPHRINE
     Indication: Product used for unknown indication
     Dosage: TEST DOSE

REACTIONS (2)
  - Horner^s syndrome [Recovered/Resolved]
  - Maternal exposure during pregnancy [Unknown]
